FAERS Safety Report 23490543 (Version 1)
Quarter: 2024Q1

REPORT INFORMATION
  Report Type: Spontaneous
  Country: US (occurrence: None)
  Receive Date: 20240206
  Receipt Date: 20240206
  Transmission Date: 20240410
  Serious: No
  Sender: FDA-Public Use
  Company Number: US-ROCHE-3319312

PATIENT
  Sex: Female
  Weight: 27.24 kg

DRUGS (2)
  1. NUTROPIN AQ [Suspect]
     Active Substance: SOMATROPIN
     Indication: Growth hormone deficiency
     Dosage: EXPIRY DATE: 31/OCT/2023
     Route: 058
     Dates: start: 202012
  2. NUTROPIN AQ [Suspect]
     Active Substance: SOMATROPIN

REACTIONS (4)
  - Injury associated with device [Unknown]
  - Contusion [Not Recovered/Not Resolved]
  - Device defective [Unknown]
  - Complication associated with device [Unknown]

NARRATIVE: CASE EVENT DATE: 20230322
